FAERS Safety Report 9314037 (Version 1)
Quarter: 2013Q2

REPORT INFORMATION
  Report Type: Spontaneous
  Country: US (occurrence: None)
  Receive Date: 20130524
  Receipt Date: 20130524
  Transmission Date: 20140414
  Serious: Yes (Hospitalization)
  Sender: FDA-Public Use
  Company Number: None

PATIENT
  Age: 62 Year
  Sex: Male
  Weight: 98.2 kg

DRUGS (1)
  1. LITHIUM [Suspect]
     Indication: SCHIZOPHRENIA, PARANOID TYPE
     Route: 048
     Dates: end: 20130201

REACTIONS (4)
  - Renal failure acute [None]
  - Hypernatraemia [None]
  - Diabetes insipidus [None]
  - Hepatic enzyme increased [None]
